FAERS Safety Report 10186201 (Version 2)
Quarter: 2014Q3

REPORT INFORMATION
  Report Type: Spontaneous
  Country: US (occurrence: US)
  Receive Date: 20140521
  Receipt Date: 20140701
  Transmission Date: 20150326
  Serious: Yes (Life-Threatening, Hospitalization, Other)
  Sender: FDA-Public Use
  Company Number: US-GLAXOSMITHKLINE-A1074062A

PATIENT
  Age: 70 Year
  Sex: Male
  Weight: 81.8 kg

DRUGS (23)
  1. FISH OIL [Concomitant]
     Active Substance: FISH OIL
  2. ZYRTEC [Concomitant]
     Active Substance: CETIRIZINE HYDROCHLORIDE
  3. CLARITIN [Suspect]
     Active Substance: LORATADINE
     Indication: MULTIPLE ALLERGIES
     Route: 065
  4. LEVOTHYROXINE [Concomitant]
     Active Substance: LEVOTHYROXINE
     Dosage: .075MG PER DAY
     Route: 065
  5. SIMVASTATIN. [Concomitant]
     Active Substance: SIMVASTATIN
     Dosage: 40MG PER DAY
     Route: 065
  6. XOLAIR [Concomitant]
     Active Substance: OMALIZUMAB
     Indication: ASTHMA
     Route: 065
  7. MULTIVITAMINS [Concomitant]
     Active Substance: VITAMINS
  8. ATROVENT [Concomitant]
     Active Substance: IPRATROPIUM BROMIDE
  9. ADVAIR HFA [Suspect]
     Active Substance: FLUTICASONE PROPIONATE\SALMETEROL XINAFOATE
     Indication: ASTHMA
     Route: 065
  10. FLONASE [Suspect]
     Active Substance: FLUTICASONE PROPIONATE
     Dosage: 2SPR PER DAY
     Route: 045
  11. PRILOSEC [Concomitant]
     Active Substance: OMEPRAZOLE MAGNESIUM
     Dosage: 40MG TWICE PER DAY
     Route: 065
  12. SINGULAIR [Concomitant]
     Active Substance: MONTELUKAST SODIUM
     Indication: ASTHMA
     Dosage: 10MG PER DAY
     Route: 065
  13. VENTOLIN [Suspect]
     Active Substance: ALBUTEROL SULFATE
     Indication: ASTHMA
     Dosage: 90MG AS REQUIRED
     Route: 065
  14. RANITIDINE HCL [Concomitant]
     Active Substance: RANITIDINE HYDROCHLORIDE
     Dosage: 300MG PER DAY
     Route: 048
  15. COUMADIN [Concomitant]
     Active Substance: WARFARIN SODIUM
     Indication: THROMBOSIS PROPHYLAXIS
     Route: 065
  16. VITAMIN D [Concomitant]
     Active Substance: CHOLECALCIFEROL
  17. GLUCOSAMINE [Concomitant]
     Active Substance: GLUCOSAMINE
  18. MAGNESIUM [Concomitant]
     Active Substance: MAGNESIUM
  19. VITAMIN C [Concomitant]
     Active Substance: ASCORBIC ACID
  20. IPRATROPII BROMIDUM [Concomitant]
  21. FEXOFENADINE HCL [Concomitant]
     Active Substance: FEXOFENADINE HYDROCHLORIDE
     Dosage: 180MG PER DAY
     Route: 065
  22. GABAPENTIN. [Concomitant]
     Active Substance: GABAPENTIN
     Dosage: 600MG THREE TIMES PER DAY
     Route: 065
  23. CHONDROITIN [Concomitant]
     Active Substance: CHONDROITIN SULFATE (CHICKEN)

REACTIONS (29)
  - Pyrexia [Recovering/Resolving]
  - Pharyngeal erythema [Recovering/Resolving]
  - Oropharyngeal candidiasis [Recovering/Resolving]
  - Pharyngitis bacterial [Recovered/Resolved]
  - Renal failure acute [Recovering/Resolving]
  - Eye swelling [Unknown]
  - Laryngitis [Recovering/Resolving]
  - Epiglottitis [Unknown]
  - Upper-airway cough syndrome [Recovering/Resolving]
  - Throat irritation [Recovering/Resolving]
  - Back pain [Unknown]
  - Productive cough [Recovering/Resolving]
  - Sinus tachycardia [Recovering/Resolving]
  - Muscular weakness [Recovering/Resolving]
  - Ocular hyperaemia [Unknown]
  - Pharyngeal lesion [Recovering/Resolving]
  - Dysphagia [Recovering/Resolving]
  - Pulmonary mass [Unknown]
  - Sepsis [Recovered/Resolved]
  - Septic shock [Recovered/Resolved]
  - White blood cell count abnormal [Recovering/Resolving]
  - Asthenia [Recovering/Resolving]
  - Hypotension [Recovering/Resolving]
  - Dysphonia [Recovering/Resolving]
  - Bronchitis [Unknown]
  - Therapeutic response decreased [Unknown]
  - Immunosuppression [Unknown]
  - Oropharyngeal pain [Recovering/Resolving]
  - Odynophagia [Recovering/Resolving]

NARRATIVE: CASE EVENT DATE: 201404
